FAERS Safety Report 8099780-6 (Version None)
Quarter: 2012Q1

REPORT INFORMATION
  Report Type: 
  Country: None (occurrence: None)
  Receive Date: 20120129
  Receipt Date: 20110916
  Transmission Date: 20120608
  Serious: No
  Sender: FDA-Public Use
  Company Number: US-ABBOTT-11P-163-0855614-00

PATIENT
  Age: 44 Year
  Sex: Female

DRUGS (6)
  1. BUPROPION HYDROCHLORIDE [Concomitant]
     Indication: DEPRESSION
  2. CALCIUM [Concomitant]
     Indication: MINERAL SUPPLEMENTATION
     Dosage: DAILY
  3. HUMIRA [Suspect]
     Indication: RHEUMATOID ARTHRITIS
     Dates: start: 20110701
  4. BUPROPION HYDROCHLORIDE [Concomitant]
     Indication: INSOMNIA
  5. FELDENE [Concomitant]
     Indication: INFLAMMATION
  6. FISH OIL [Concomitant]
     Indication: MEDICAL DIET
     Dosage: DAILY

REACTIONS (4)
  - INJECTION SITE HAEMATOMA [None]
  - INCREASED TENDENCY TO BRUISE [None]
  - FEELING ABNORMAL [None]
  - INJECTION SITE HAEMORRHAGE [None]
